FAERS Safety Report 5280626-6 (Version None)
Quarter: 2007Q1

REPORT INFORMATION
  Report Type: 
  Country: None (occurrence: None)
  Receive Date: 20070329
  Receipt Date: 20070326
  Transmission Date: 20070707
  Serious: Yes (Life-Threatening)
  Sender: FDA-Public Use
  Company Number: 2007CG00496

PATIENT
  Age: 2 Year
  Sex: Female

DRUGS (7)
  1. DIPRIVAN [Suspect]
     Indication: ANAESTHESIA
     Route: 042
     Dates: start: 20070216, end: 20070216
  2. HYPNOVEL [Interacting]
     Indication: PREMEDICATION
     Route: 042
     Dates: start: 20070216, end: 20070216
  3. SEVOFLURANE [Interacting]
     Indication: ANAESTHESIA
     Route: 055
     Dates: start: 20070216, end: 20070216
  4. MINISINTROM [Interacting]
     Route: 048
  5. DESFLURANE [Interacting]
     Indication: ANAESTHESIA
     Route: 055
     Dates: start: 20070216, end: 20070216
  6. PERFALGAN [Interacting]
     Route: 042
  7. KETAMINE HCL [Interacting]
     Dates: start: 20070216, end: 20070216

REACTIONS (2)
  - COAGULATION TIME PROLONGED [None]
  - DRUG INTERACTION [None]
